FAERS Safety Report 15424021 (Version 5)
Quarter: 2019Q2

REPORT INFORMATION
  Report Type: Spontaneous
  Country: US (occurrence: US)
  Receive Date: 20180925
  Receipt Date: 20190614
  Transmission Date: 20190711
  Serious: Yes (Hospitalization, Other)
  Sender: FDA-Public Use
  Company Number: US-GLAXOSMITHKLINE-US2018GSK172986

PATIENT
  Sex: Male
  Weight: 83 kg

DRUGS (3)
  1. OMEPRAZOLE. [Suspect]
     Active Substance: OMEPRAZOLE
     Indication: GASTROOESOPHAGEAL REFLUX DISEASE
     Dosage: 40 MG, UNK
     Route: 065
  2. ESOMEPRAZOLE. [Suspect]
     Active Substance: ESOMEPRAZOLE MAGNESIUM
     Indication: GASTROOESOPHAGEAL REFLUX DISEASE
     Dosage: 40 MG, UNK
     Route: 065
  3. PREVACID [Suspect]
     Active Substance: LANSOPRAZOLE
     Indication: GASTROOESOPHAGEAL REFLUX DISEASE
     Dosage: UNK
     Route: 065

REACTIONS (18)
  - Chronic kidney disease [Unknown]
  - Urinary incontinence [Unknown]
  - Nephropathy [Unknown]
  - Nephrolithiasis [Unknown]
  - Haematuria [Unknown]
  - Hypertensive nephropathy [Unknown]
  - Obstructive nephropathy [Unknown]
  - Renal colic [Unknown]
  - Proteinuria [Unknown]
  - Nocturia [Unknown]
  - Ureteral cyst [Unknown]
  - Renal impairment [Unknown]
  - Nephrocalcinosis [Unknown]
  - Renal failure [Unknown]
  - Ureteric dilatation [Unknown]
  - Dysuria [Unknown]
  - Renal cyst [Unknown]
  - Renal pain [Unknown]
